FAERS Safety Report 20945681 (Version 1)
Quarter: 2022Q2

REPORT INFORMATION
  Report Type: Report from Study
  Country: FR (occurrence: FR)
  Receive Date: 20220610
  Receipt Date: 20220610
  Transmission Date: 20220721
  Serious: Yes (Other)
  Sender: FDA-Public Use
  Company Number: FR-JNJFOC-20201150375

PATIENT

DRUGS (2)
  1. IBRUTINIB [Suspect]
     Active Substance: IBRUTINIB
     Indication: Diffuse large B-cell lymphoma
     Route: 048
  2. IBRUTINIB [Suspect]
     Active Substance: IBRUTINIB
     Indication: Non-Hodgkin^s lymphoma

REACTIONS (2)
  - Natural killer-cell lymphoblastic lymphoma [Unknown]
  - Off label use [Unknown]
